FAERS Safety Report 14663842 (Version 1)
Quarter: 2018Q1

REPORT INFORMATION
  Report Type: Spontaneous
  Country: US (occurrence: US)
  Receive Date: 20180321
  Receipt Date: 20180321
  Transmission Date: 20180509
  Serious: Yes (Death)
  Sender: FDA-Public Use
  Company Number: US-BIOCOMPATIBLES UK LTD-2018BTG01527

PATIENT
  Age: 22 Year
  Sex: Female

DRUGS (2)
  1. DIGIFAB [Suspect]
     Active Substance: OVINE DIGOXIN IMMUNE FAB
     Indication: EXPOSURE TO TOXIC AGENT
     Dosage: 10 VIALS, UNK
  2. DIGIFAB [Suspect]
     Active Substance: OVINE DIGOXIN IMMUNE FAB
     Dosage: 10 VIALS, UNK

REACTIONS (2)
  - Completed suicide [Fatal]
  - Off label use [Unknown]
